FAERS Safety Report 8235804-0 (Version None)
Quarter: 2012Q1

REPORT INFORMATION
  Report Type: 
  Country: None (occurrence: None)
  Receive Date: 20120326
  Receipt Date: 20120315
  Transmission Date: 20120608
  Serious: Yes (Hospitalization, Other)
  Sender: FDA-Public Use
  Company Number: CA-ROCHE-1043541

PATIENT
  Sex: Female
  Weight: 58 kg

DRUGS (3)
  1. ACTEMRA [Suspect]
     Indication: RHEUMATOID ARTHRITIS
     Route: 042
     Dates: start: 20101201
  2. TIAZAC [Concomitant]
  3. ATORVASTATIN [Concomitant]

REACTIONS (5)
  - ARTHRALGIA [None]
  - SWELLING [None]
  - INTERVERTEBRAL DISC PROTRUSION [None]
  - BACK PAIN [None]
  - OEDEMA PERIPHERAL [None]
